FAERS Safety Report 22005363 (Version 2)
Quarter: 2023Q1

REPORT INFORMATION
  Report Type: Spontaneous
  Country: US (occurrence: US)
  Receive Date: 20230217
  Receipt Date: 20230315
  Transmission Date: 20230418
  Serious: No
  Sender: FDA-Public Use
  Company Number: US-BIOVITRUM-2023US02259

PATIENT
  Age: 8 Month
  Sex: Male
  Weight: 6 kg

DRUGS (3)
  1. SYNAGIS [Suspect]
     Active Substance: PALIVIZUMAB
     Indication: Premature baby
     Dosage: SYNAGIS 100 MG SDV/INJ PF 1ML 1S
     Route: 030
     Dates: start: 202210
  2. IRON\VITAMINS [Concomitant]
     Active Substance: IRON\VITAMINS
  3. ACETAMINOPHEN [Concomitant]
     Active Substance: ACETAMINOPHEN
     Indication: Product used for unknown indication
     Dosage: 160 MG/5 ML

REACTIONS (7)
  - Fatigue [Recovering/Resolving]
  - Hypersomnia [Recovering/Resolving]
  - Nasopharyngitis [Not Recovered/Not Resolved]
  - Cough [Not Recovered/Not Resolved]
  - Nasal congestion [Not Recovered/Not Resolved]
  - Pyrexia [Not Recovered/Not Resolved]
  - Hypophagia [Recovering/Resolving]

NARRATIVE: CASE EVENT DATE: 20230309
